FAERS Safety Report 14708646 (Version 1)
Quarter: 2018Q2

REPORT INFORMATION
  Report Type: Spontaneous
  Country: US (occurrence: US)
  Receive Date: 20180403
  Receipt Date: 20180403
  Transmission Date: 20180711
  Serious: No
  Sender: FDA-Public Use
  Company Number: US-GLAXOSMITHKLINE-US2018054883

PATIENT
  Sex: Female

DRUGS (4)
  1. FLUTICASONE NASAL SPRAY [Concomitant]
     Active Substance: FLUTICASONE
  2. VENTOLIN HFA [Suspect]
     Active Substance: ALBUTEROL SULFATE
     Indication: RESPIRATORY TRACT INFECTION
     Dosage: 2 PUFF(S), PRN
  3. VENTOLIN HFA [Suspect]
     Active Substance: ALBUTEROL SULFATE
     Indication: DYSPNOEA
  4. AMLODIPINE + LISINOPRIL [Concomitant]

REACTIONS (3)
  - Wrong technique in device usage process [Unknown]
  - Drug ineffective [Unknown]
  - Wrong technique in product usage process [Unknown]
